FAERS Safety Report 11639476 (Version 1)
Quarter: 2015Q4

REPORT INFORMATION
  Report Type: Spontaneous
  Country: US (occurrence: None)
  Receive Date: 20151016
  Receipt Date: 20151016
  Transmission Date: 20160304
  Serious: Yes (Hospitalization)
  Sender: FDA-Public Use
  Company Number: None

PATIENT
  Sex: Female

DRUGS (1)
  1. TOBRAMYCIN. [Suspect]
     Active Substance: TOBRAMYCIN
     Indication: LUNG TRANSPLANT
     Route: 055
     Dates: start: 20150824, end: 20151014

REACTIONS (3)
  - Carbon dioxide increased [None]
  - Headache [None]
  - Bronchospasm [None]
